FAERS Safety Report 5747732-0 (Version None)
Quarter: 2008Q2

REPORT INFORMATION
  Report Type: 
  Country: None (occurrence: None)
  Receive Date: 20080523
  Receipt Date: 20080520
  Transmission Date: 20081010
  Serious: Yes (Hospitalization)
  Sender: FDA-Public Use
  Company Number: US-BRISTOL-MYERS SQUIBB COMPANY-14197651

PATIENT
  Age: 55 Year
  Sex: Female
  Weight: 82 kg

DRUGS (7)
  1. ETOPOSIDE [Suspect]
     Indication: SMALL CELL LUNG CANCER EXTENSIVE STAGE
     Dosage: FIRST RECEIVED ON 26-JUN-07,(DAY 1,2,3 OF 21 DAY CYCLE)THERAPY DURATION:108DAYS
     Route: 042
     Dates: start: 20071011, end: 20071011
  2. CARBOPLATIN [Suspect]
     Indication: SMALL CELL LUNG CANCER EXTENSIVE STAGE
     Dosage: 5DF:5AUC,RCEIVED FIRST DOSAGE ON 26JUN07,LAST DOSE ON 09OCT07.DURATION:106DAYS
     Route: 042
     Dates: start: 20071009, end: 20071009
  3. ALBUTEROL [Concomitant]
     Dates: start: 20070619
  4. ATROVENT [Concomitant]
  5. TOPROL-XL [Concomitant]
     Dates: start: 20070827
  6. POTASSIUM CHLORIDE [Concomitant]
     Dates: start: 20070917
  7. TUSSIONEX [Concomitant]
     Dates: start: 20070917

REACTIONS (4)
  - CANDIDIASIS [None]
  - DYSPHAGIA [None]
  - MUCOSAL INFLAMMATION [None]
  - NEUTROPENIA [None]
